FAERS Safety Report 6168568-5 (Version None)
Quarter: 2009Q2

REPORT INFORMATION
  Report Type: 
  Country: None (occurrence: None)
  Receive Date: 20090427
  Receipt Date: 20090422
  Transmission Date: 20091009
  Serious: Yes (Hospitalization, Other)
  Sender: FDA-Public Use
  Company Number: FR-BRISTOL-MYERS SQUIBB COMPANY-14441232

PATIENT
  Age: 86 Year
  Sex: Male

DRUGS (9)
  1. COUMADIN [Suspect]
     Dates: end: 20081104
  2. COLCHIMAX [Interacting]
     Dates: start: 20081104
  3. ZECLAR [Interacting]
     Dates: start: 20081023, end: 20081104
  4. APROVEL [Concomitant]
     Route: 048
  5. CARDENSIEL [Concomitant]
  6. FUROSEMIDE [Concomitant]
  7. INIPOMP [Concomitant]
  8. ISOXAN [Concomitant]
  9. VOLTAREN [Concomitant]

REACTIONS (9)
  - ALOPECIA [None]
  - DIARRHOEA [None]
  - DRUG INTERACTION [None]
  - INTERNATIONAL NORMALISED RATIO INCREASED [None]
  - LIVER DISORDER [None]
  - PANCYTOPENIA [None]
  - RENAL FAILURE ACUTE [None]
  - RESPIRATORY FAILURE [None]
  - SHOCK [None]
